FAERS Safety Report 5535480-1 (Version None)
Quarter: 2007Q4

REPORT INFORMATION
  Report Type: 
  Country: None (occurrence: None)
  Receive Date: 20071204
  Receipt Date: 20071204
  Transmission Date: 20080405
  Serious: Yes (Hospitalization, Other)
  Sender: FDA-Public Use
  Company Number: None

PATIENT
  Age: 33 Year
  Sex: Female
  Weight: 65.318 kg

DRUGS (2)
  1. YAZ [Suspect]
     Indication: CONTRACEPTION
     Dosage: ONE PER DAY  PO
     Route: 048
     Dates: start: 20071118, end: 20071123
  2. YAZ [Suspect]
     Indication: PREMENSTRUAL SYNDROME
     Dosage: ONE PER DAY  PO
     Route: 048
     Dates: start: 20071118, end: 20071123

REACTIONS (5)
  - ASTHENIA [None]
  - CHEST DISCOMFORT [None]
  - DIZZINESS [None]
  - DYSPNOEA [None]
  - PALPITATIONS [None]
